FAERS Safety Report 5677282-1 (Version None)
Quarter: 2008Q1

REPORT INFORMATION
  Report Type: 
  Country: None (occurrence: None)
  Receive Date: 20080320
  Receipt Date: 20080320
  Transmission Date: 20080703
  Serious: Yes (Other)
  Sender: FDA-Public Use
  Company Number: None

PATIENT
  Age: 20 Year
  Sex: Female
  Weight: 77 kg

DRUGS (1)
  1. ACYCLOVIR [Suspect]
     Indication: MENINGITIS VIRAL
     Dosage: 700MG Q8H IV
     Route: 042
     Dates: start: 20080221, end: 20080224

REACTIONS (1)
  - BLOOD CREATININE INCREASED [None]
